FAERS Safety Report 10161865 (Version 1)
Quarter: 2014Q2

REPORT INFORMATION
  Report Type: Spontaneous
  Country: US (occurrence: US)
  Receive Date: 20140509
  Receipt Date: 20140509
  Transmission Date: 20141212
  Serious: Yes (Other)
  Sender: FDA-Public Use
  Company Number: US-009507513-1405USA002185

PATIENT
  Sex: 0

DRUGS (4)
  1. EMEND [Suspect]
     Indication: PROPHYLAXIS OF NAUSEA AND VOMITING
     Dosage: TRIPAK 125 MG, DAY ONE
     Route: 048
  2. EMEND [Suspect]
     Dosage: TRIPAK 80 MG, DAY TWO
  3. EMEND [Suspect]
     Dosage: TRIPAK 80 MG, DAY THREE
  4. DEXAMETHASONE [Concomitant]
     Route: 048

REACTIONS (2)
  - Neoplasm malignant [Not Recovered/Not Resolved]
  - Drug ineffective [Not Recovered/Not Resolved]
